FAERS Safety Report 5559689-6 (Version None)
Quarter: 2007Q4

REPORT INFORMATION
  Report Type: 
  Country: None (occurrence: None)
  Receive Date: 20071214
  Receipt Date: 20071010
  Transmission Date: 20080405
  Serious: No
  Sender: FDA-Public Use
  Company Number: US-ABBOTT-07P-163-0420731-00

PATIENT
  Sex: Female
  Weight: 48.578 kg

DRUGS (3)
  1. HUMIRA [Suspect]
     Indication: MIXED CONNECTIVE TISSUE DISEASE
     Route: 058
     Dates: start: 20070101
  2. TYLENOL (CAPLET) [Suspect]
     Indication: INITIAL INSOMNIA
     Dosage: RAPID RELEASE GEL TABS
     Route: 048
     Dates: start: 20071009, end: 20071009
  3. METHOTREXATE [Concomitant]
     Indication: MIXED CONNECTIVE TISSUE DISEASE
     Route: 048
     Dates: start: 20030101

REACTIONS (2)
  - RASH ERYTHEMATOUS [None]
  - RASH PAPULAR [None]
